FAERS Safety Report 22354412 (Version 1)
Quarter: 2023Q2

REPORT INFORMATION
  Report Type: Spontaneous
  Country: IN (occurrence: IN)
  Receive Date: 20230523
  Receipt Date: 20230523
  Transmission Date: 20230721
  Serious: Yes (Other)
  Sender: FDA-Public Use
  Company Number: IN-Accord-358916

PATIENT
  Age: 28 Year
  Sex: Female

DRUGS (1)
  1. CLOZAPINE [Suspect]
     Active Substance: CLOZAPINE
     Indication: Antipsychotic therapy
     Dosage: 12.5 MG PER DAY ON DAY-4, 25 MG PER DAY ON DAY-7 AND 50 MG/DAY ON DAY-21

REACTIONS (1)
  - Bicytopenia [Recovered/Resolved]
